FAERS Safety Report 15712366 (Version 7)
Quarter: 2021Q1

REPORT INFORMATION
  Report Type: Other
  Country: US (occurrence: US)
  Receive Date: 20181212
  Receipt Date: 20210118
  Transmission Date: 20210419
  Serious: Yes (Hospitalization, Other)
  Sender: FDA-Public Use
  Company Number: US-ROCHE-2224911

PATIENT
  Age: 55 Year
  Sex: Female
  Weight: 93.07 kg

DRUGS (40)
  1. OCREVUS [Suspect]
     Active Substance: OCRELIZUMAB
     Indication: MULTIPLE SCLEROSIS
     Route: 042
     Dates: start: 20171129
  2. OCREVUS [Suspect]
     Active Substance: OCRELIZUMAB
     Dosage: NEXT INFUSION 18/DEC/2018
     Route: 042
     Dates: start: 20180618
  3. OCREVUS [Suspect]
     Active Substance: OCRELIZUMAB
     Route: 042
  4. OCREVUS [Suspect]
     Active Substance: OCRELIZUMAB
     Dosage: 19/JUN/2019
     Route: 042
     Dates: start: 20181218
  5. NYSTATIN. [Concomitant]
     Active Substance: NYSTATIN
     Route: 061
  6. NYSTATIN. [Concomitant]
     Active Substance: NYSTATIN
     Dosage: POWDER
  7. PLEGRIDY [Concomitant]
     Active Substance: PEGINTERFERON BETA-1A
  8. OCREVUS [Suspect]
     Active Substance: OCRELIZUMAB
     Route: 042
  9. CYANOCOBALAMIN. [Concomitant]
     Active Substance: CYANOCOBALAMIN
  10. IBUPROFEN. [Concomitant]
     Active Substance: IBUPROFEN
     Indication: PAIN
     Dosage: EVERY 6 HOURS AS NEEDED
  11. ONDANSETRON [Concomitant]
     Active Substance: ONDANSETRON
     Dosage: EVERY 6 HOURS
     Route: 048
  12. PREGABALIN. [Concomitant]
     Active Substance: PREGABALIN
     Route: 048
  13. PSEUDOEPHEDRINE. [Concomitant]
     Active Substance: PSEUDOEPHEDRINE HYDROCHLORIDE
     Route: 048
  14. ADVAIR DISKUS [Concomitant]
     Active Substance: FLUTICASONE PROPIONATE\SALMETEROL XINAFOATE
  15. OCREVUS [Suspect]
     Active Substance: OCRELIZUMAB
     Route: 042
  16. ALBUTEROL. [Concomitant]
     Active Substance: ALBUTEROL
     Dosage: 90 MCG/ACT
     Route: 055
  17. LYRICA [Concomitant]
     Active Substance: PREGABALIN
     Route: 048
  18. METHYLPREDNISOLONE SODIUM SUCCINATE. [Concomitant]
     Active Substance: METHYLPREDNISOLONE SODIUM SUCCINATE
     Dosage: INJECT 8 MLS INTO VEINS EVERY 24 HOURS FOR 5 DAYS.?1000MG/8ML INJECTION
  19. MODAFINIL. [Concomitant]
     Active Substance: MODAFINIL
     Dosage: 1?2 TABLES DAILY
     Route: 048
  20. PEGINTERFERON BETA?1A [Concomitant]
     Active Substance: PEGINTERFERON BETA-1A
     Dosage: 125 MCG/0.5ML?0.5 ML UNDER THE SKIN
  21. CIPROFLOXACIN. [Concomitant]
     Active Substance: CIPROFLOXACIN
  22. METHAMPHETAMINE [Concomitant]
     Active Substance: METHAMPHETAMINE
  23. CHOLECALCIFEROL [Concomitant]
     Active Substance: CHOLECALCIFEROL
     Route: 048
  24. HYDROMORPHONE [Concomitant]
     Active Substance: HYDROMORPHONE
     Indication: PAIN
     Dosage: EVERY 3 HOURS AS NEEDED
  25. MEDROXYPROGESTERONE ACETATE. [Concomitant]
     Active Substance: MEDROXYPROGESTERONE ACETATE
  26. LIDOCAINE. [Concomitant]
     Active Substance: LIDOCAINE
  27. OCREVUS [Suspect]
     Active Substance: OCRELIZUMAB
     Dosage: ONGOING:NO
     Route: 042
  28. MECLIZINE [Concomitant]
     Active Substance: MECLIZINE HYDROCHLORIDE
     Route: 048
  29. KEFLEX [Concomitant]
     Active Substance: CEPHALEXIN
     Dosage: 10 DAY DOSAGE
     Dates: start: 20181129
  30. DOCUSATE SODIUM. [Concomitant]
     Active Substance: DOCUSATE SODIUM
     Route: 048
  31. HYDROMORPHONE [Concomitant]
     Active Substance: HYDROMORPHONE
     Route: 048
  32. LEVOCETIRIZINE [Concomitant]
     Active Substance: LEVOCETIRIZINE
     Route: 048
  33. RIVAROXABAN [Concomitant]
     Active Substance: RIVAROXABAN
     Dosage: EVERY EVENING
     Route: 048
  34. TIZANIDINE. [Concomitant]
     Active Substance: TIZANIDINE
     Dosage: 4 MG 4 TIMES DAILY
     Route: 048
  35. OCREVUS [Suspect]
     Active Substance: OCRELIZUMAB
     Dosage: ONGOING:YES
     Route: 042
  36. MACROBID [Concomitant]
     Active Substance: NITROFURANTOIN\NITROFURANTOIN MONOHYDRATE
  37. DULOXETINE. [Concomitant]
     Active Substance: DULOXETINE
     Route: 048
  38. MAGNESIUM OXIDE. [Concomitant]
     Active Substance: MAGNESIUM OXIDE
  39. SIMVASTATIN. [Concomitant]
     Active Substance: SIMVASTATIN
     Route: 048
  40. TOPIRAMATE. [Concomitant]
     Active Substance: TOPIRAMATE
     Route: 048

REACTIONS (9)
  - Kidney infection [Recovering/Resolving]
  - Multiple sclerosis relapse [Unknown]
  - Postoperative wound complication [Not Recovered/Not Resolved]
  - Cystitis [Not Recovered/Not Resolved]
  - Memory impairment [Not Recovered/Not Resolved]
  - Urinary tract infection [Not Recovered/Not Resolved]
  - Fall [Unknown]
  - Nephrolithiasis [Not Recovered/Not Resolved]
  - Depression [Not Recovered/Not Resolved]

NARRATIVE: CASE EVENT DATE: 2018
